FAERS Safety Report 4618115-1 (Version None)
Quarter: 2005Q1

REPORT INFORMATION
  Report Type: 
  Country: None (occurrence: None)
  Receive Date: 20050322
  Receipt Date: 20050309
  Transmission Date: 20050727
  Serious: Yes (Other)
  Sender: FDA-Public Use
  Company Number: 2005044252

PATIENT
  Age: 77 Year
  Sex: Female

DRUGS (2)
  1. BEXTRA [Suspect]
     Indication: ARTHRITIS
     Dosage: (10 MG), ORAL
     Route: 048
  2. PREDNISONE [Concomitant]

REACTIONS (4)
  - BLINDNESS [None]
  - EAR INFECTION [None]
  - PRURITUS [None]
  - TREATMENT NONCOMPLIANCE [None]
